FAERS Safety Report 7915173-3 (Version None)
Quarter: 2011Q4

REPORT INFORMATION
  Report Type: 
  Country: None (occurrence: None)
  Receive Date: 20111115
  Receipt Date: 20111109
  Transmission Date: 20120403
  Serious: Yes (Other)
  Sender: FDA-Public Use
  Company Number: US-JNJFOC-20111104925

PATIENT
  Age: 83 Year
  Sex: Female
  Weight: 54.43 kg

DRUGS (8)
  1. NEUTROGENA NORWEGIAN FORMULA HAND CREAM [Suspect]
     Indication: DRY SKIN
     Dosage: SMALLER PEA SIZE
     Route: 061
     Dates: start: 20111106, end: 20111106
  2. LAMOTRIGINE [Concomitant]
     Indication: CONVULSION
     Route: 065
     Dates: start: 20040101
  3. VITAMIN D [Concomitant]
     Indication: NUTRITIONAL SUPPORT
     Route: 065
     Dates: start: 20100101
  4. SIMVASTATIN [Concomitant]
     Indication: BLOOD CHOLESTEROL ABNORMAL
     Route: 065
     Dates: start: 20080101
  5. ACTONEL [Concomitant]
     Indication: OSTEOPOROSIS PROPHYLAXIS
     Route: 065
     Dates: start: 20050101
  6. ROBITUSSIN NOS [Concomitant]
     Indication: PRODUCTIVE COUGH
     Dosage: AS NEEDED
     Route: 065
     Dates: start: 20010101
  7. LORATADINE [Concomitant]
     Indication: MULTIPLE ALLERGIES
     Route: 065
  8. ROBITUSSIN NOS [Concomitant]
     Indication: SINUS OPERATION
     Dosage: AS NEEDED
     Route: 065
     Dates: start: 20010101

REACTIONS (5)
  - DYSPNOEA [None]
  - EYE IRRITATION [None]
  - NASAL CONGESTION [None]
  - PHARYNGEAL OEDEMA [None]
  - LACRIMATION INCREASED [None]
